FAERS Safety Report 5724978-9 (Version None)
Quarter: 2008Q2

REPORT INFORMATION
  Report Type: 
  Country: None (occurrence: None)
  Receive Date: 20080501
  Receipt Date: 20080424
  Transmission Date: 20081010
  Serious: Yes (Hospitalization)
  Sender: FDA-Public Use
  Company Number: FR-AVENTIS-200811581FR

PATIENT
  Age: 80 Year
  Sex: Male

DRUGS (14)
  1. CLAFORAN [Suspect]
     Route: 042
     Dates: start: 20080122, end: 20080204
  2. VANCOMYCIN HCL [Suspect]
     Route: 042
     Dates: start: 20080121, end: 20080127
  3. VANCOMYCIN HCL [Suspect]
     Dates: start: 20080204, end: 20080214
  4. GENTAMICIN [Suspect]
     Route: 042
     Dates: start: 20080120, end: 20080127
  5. LASILIX                            /00032601/ [Concomitant]
  6. PLAVIX [Concomitant]
     Indication: PROPHYLAXIS
  7. TEMERIT [Concomitant]
  8. KENZEN [Concomitant]
     Indication: CARDIAC DISORDER
  9. ZOCOR [Concomitant]
  10. EUPHYLLINE [Concomitant]
  11. SYMBICORT [Concomitant]
     Indication: ASTHMA
  12. COMBIVENT                          /01033501/ [Concomitant]
     Indication: ASTHMA
  13. RIFADIN [Concomitant]
     Route: 042
     Dates: start: 20080204, end: 20080220
  14. RIFADIN [Concomitant]
     Route: 048
     Dates: start: 20080220

REACTIONS (2)
  - BLOOD CREATININE INCREASED [None]
  - RENAL FAILURE ACUTE [None]
